FAERS Safety Report 20161324 (Version 1)
Quarter: 2021Q4

REPORT INFORMATION
  Report Type: Report from Study
  Country: US (occurrence: US)
  Receive Date: 20211208
  Receipt Date: 20211208
  Transmission Date: 20220303
  Serious: Yes (Hospitalization)
  Sender: FDA-Public Use
  Company Number: US-TAKEDA-US201734042

PATIENT
  Age: 49 Year
  Sex: Male

DRUGS (12)
  1. TEDUGLUTIDE [Suspect]
     Active Substance: TEDUGLUTIDE
     Indication: Short-bowel syndrome
     Dosage: 0.38 ML, 1X/DAY:QD
     Route: 065
     Dates: start: 20170517
  2. TEDUGLUTIDE [Suspect]
     Active Substance: TEDUGLUTIDE
     Indication: Short-bowel syndrome
     Dosage: 0.38 ML, 1X/DAY:QD
     Route: 065
     Dates: start: 20170517
  3. TEDUGLUTIDE [Suspect]
     Active Substance: TEDUGLUTIDE
     Indication: Short-bowel syndrome
     Dosage: 0.38 ML, 1X/DAY:QD
     Route: 065
     Dates: start: 20170517
  4. TEDUGLUTIDE [Suspect]
     Active Substance: TEDUGLUTIDE
     Indication: Short-bowel syndrome
     Dosage: 0.38 ML, 1X/DAY:QD
     Route: 065
     Dates: start: 20170517
  5. TEDUGLUTIDE [Suspect]
     Active Substance: TEDUGLUTIDE
     Dosage: 0.38 ML, 1X/DAY:QD
     Route: 058
     Dates: start: 201705
  6. TEDUGLUTIDE [Suspect]
     Active Substance: TEDUGLUTIDE
     Dosage: 0.38 ML, 1X/DAY:QD
     Route: 058
     Dates: start: 201705
  7. TEDUGLUTIDE [Suspect]
     Active Substance: TEDUGLUTIDE
     Dosage: 0.38 ML, 1X/DAY:QD
     Route: 058
     Dates: start: 201705
  8. TEDUGLUTIDE [Suspect]
     Active Substance: TEDUGLUTIDE
     Dosage: 0.38 ML, 1X/DAY:QD
     Route: 058
     Dates: start: 201705
  9. TEDUGLUTIDE [Suspect]
     Active Substance: TEDUGLUTIDE
     Dosage: 0.38 ML, 1X/DAY:QD
     Route: 050
     Dates: start: 201705
  10. TEDUGLUTIDE [Suspect]
     Active Substance: TEDUGLUTIDE
     Dosage: 0.38 ML, 1X/DAY:QD
     Route: 050
     Dates: start: 201705
  11. TEDUGLUTIDE [Suspect]
     Active Substance: TEDUGLUTIDE
     Dosage: 0.38 ML, 1X/DAY:QD
     Route: 050
     Dates: start: 201705
  12. TEDUGLUTIDE [Suspect]
     Active Substance: TEDUGLUTIDE
     Dosage: 0.38 ML, 1X/DAY:QD
     Route: 050
     Dates: start: 201705

REACTIONS (2)
  - Gastrointestinal surgery [Recovered/Resolved]
  - Therapy cessation [Unknown]

NARRATIVE: CASE EVENT DATE: 20171213
